FAERS Safety Report 8384031-5 (Version None)
Quarter: 2012Q2

REPORT INFORMATION
  Report Type: 
  Country: None (occurrence: None)
  Receive Date: 20120524
  Receipt Date: 20120518
  Transmission Date: 20120825
  Serious: No
  Sender: FDA-Public Use
  Company Number: US-BAYER-2012-050769

PATIENT
  Age: 83 Year
  Sex: Female
  Weight: 76 kg

DRUGS (15)
  1. NAPROXEN SODIUM [Suspect]
     Indication: ANALGESIC THERAPY
     Dosage: 1 DF, QID
     Route: 048
     Dates: start: 20120517
  2. RESVERATROL [Concomitant]
  3. SELENIUM [Concomitant]
  4. ASPIRIN [Concomitant]
  5. CALCIUM [Concomitant]
  6. ALPHA LIPOIC ACID [Concomitant]
  7. FOLIC ACID [Concomitant]
  8. MAGNESIUM [Concomitant]
  9. VITAMIN E [Concomitant]
  10. MULTI-VITAMINS [Concomitant]
  11. LOVAZA [Concomitant]
  12. VITAMIN D [Concomitant]
  13. OSTEO BI-FLEX [Concomitant]
  14. EVISTA [Concomitant]
  15. GLUCOSAMINE SULFATE W/CHONDROITIN [Concomitant]

REACTIONS (1)
  - NO ADVERSE EVENT [None]
